FAERS Safety Report 6457543-9 (Version None)
Quarter: 2009Q4

REPORT INFORMATION
  Report Type: 
  Country: None (occurrence: None)
  Receive Date: 20091125
  Receipt Date: 20091113
  Transmission Date: 20100525
  Serious: Yes (Other)
  Sender: FDA-Public Use
  Company Number: PHHY2009JP48361

PATIENT
  Age: 67 Year
  Sex: Male
  Weight: 71 kg

DRUGS (2)
  1. TEGRETOL [Suspect]
     Indication: PAIN IN EXTREMITY
  2. ANALGESICS [Concomitant]

REACTIONS (13)
  - DRUG ERUPTION [None]
  - DYSPHAGIA [None]
  - EATING DISORDER [None]
  - GINGIVAL SWELLING [None]
  - LIP PAIN [None]
  - LIP SWELLING [None]
  - LIP ULCERATION [None]
  - OEDEMA MOUTH [None]
  - OEDEMA PERIPHERAL [None]
  - PARAESTHESIA [None]
  - PARESIS [None]
  - STOMATITIS [None]
  - SWOLLEN TONGUE [None]
